FAERS Safety Report 22398971 (Version 1)
Quarter: 2023Q2

REPORT INFORMATION
  Report Type: Spontaneous
  Country: US (occurrence: US)
  Receive Date: 20230602
  Receipt Date: 20230602
  Transmission Date: 20230721
  Serious: Yes (Other)
  Sender: FDA-Public Use
  Company Number: US-SA-SAC20230601000569

PATIENT
  Age: 84 Year
  Sex: Male

DRUGS (1)
  1. DUPIXENT [Suspect]
     Active Substance: DUPILUMAB
     Indication: Dermatitis atopic
     Dosage: 300 MG, QOW
     Route: 058
     Dates: start: 20230505

REACTIONS (7)
  - Myelodysplastic syndrome [Unknown]
  - Red blood cell count abnormal [Unknown]
  - Platelet count abnormal [Unknown]
  - Contusion [Unknown]
  - Injection site pain [Unknown]
  - Wrong technique in product usage process [Unknown]
  - Rash pruritic [Unknown]

NARRATIVE: CASE EVENT DATE: 20230501
